FAERS Safety Report 9155215 (Version 1)
Quarter: 2013Q1

REPORT INFORMATION
  Report Type: Spontaneous
  Country: US (occurrence: None)
  Receive Date: 20130206
  Receipt Date: 20130206
  Transmission Date: 20140127
  Serious: Yes (Hospitalization, Other)
  Sender: FDA-Public Use
  Company Number: DAV-AE-MTX-13-10

PATIENT
  Age: 51 Year
  Sex: Female

DRUGS (2)
  1. METHOTREXATE [Suspect]
     Indication: RHEUMATOID ARTHRITIS
  2. PREDNISONE [Concomitant]

REACTIONS (6)
  - Neutropenia [None]
  - Acute respiratory distress syndrome [None]
  - Immune reconstitution inflammatory syndrome [None]
  - Pneumocystis jirovecii pneumonia [None]
  - Marrow hyperplasia [None]
  - Respiratory failure [None]
